FAERS Safety Report 7927235-5 (Version None)
Quarter: 2011Q4

REPORT INFORMATION
  Report Type: 
  Country: None (occurrence: None)
  Receive Date: 20111118
  Receipt Date: 20111115
  Transmission Date: 20120403
  Serious: Yes (Hospitalization)
  Sender: FDA-Public Use
  Company Number: US-VERTEX PHARMACEUTICALS INC.-AE-2011-003477

PATIENT
  Sex: Male

DRUGS (3)
  1. PEGASYS [Concomitant]
     Indication: HEPATITIS C
     Dates: start: 20111026
  2. INCIVEK [Suspect]
     Indication: HEPATITIS C
     Route: 048
     Dates: start: 20111026
  3. RIBAVIRIN [Concomitant]
     Indication: HEPATITIS C
     Dates: start: 20111026

REACTIONS (4)
  - BLOOD PRESSURE DECREASED [None]
  - DIZZINESS [None]
  - DEHYDRATION [None]
  - ASTHENIA [None]
